FAERS Safety Report 7406141-9 (Version None)
Quarter: 2011Q2

REPORT INFORMATION
  Report Type: 
  Country: None (occurrence: None)
  Receive Date: 20110401
  Receipt Date: 20110321
  Transmission Date: 20111010
  Serious: Yes (Hospitalization)
  Sender: FDA-Public Use
  Company Number: UTC-005841

PATIENT
  Age: 70 Year
  Sex: Female
  Weight: 76.36 kg

DRUGS (4)
  1. COUMADIN [Concomitant]
  2. DIURETICS (DIURETICS) [Concomitant]
  3. REMODULIN [Suspect]
     Dosage: 84/96 UG/KG (0.059 UG/KG,1 IN 1 MIN),SUBCUTANEOUS
     Route: 058
     Dates: start: 20081120
  4. REVATIO [Concomitant]

REACTIONS (8)
  - VOMITING [None]
  - SEPSIS [None]
  - NAUSEA [None]
  - INFUSION SITE PAIN [None]
  - BLADDER SPASM [None]
  - DIARRHOEA [None]
  - PAIN IN EXTREMITY [None]
  - KIDNEY INFECTION [None]
